FAERS Safety Report 5658684-6 (Version None)
Quarter: 2008Q1

REPORT INFORMATION
  Report Type: 
  Country: None (occurrence: None)
  Receive Date: 20080310
  Receipt Date: 20070404
  Transmission Date: 20080703
  Serious: No
  Sender: FDA-Public Use
  Company Number: US-BAYER-200711027BCC

PATIENT
  Age: 72 Year
  Sex: Female
  Weight: 63 kg

DRUGS (3)
  1. ALEVE [Suspect]
     Indication: ARTHRITIS
     Dosage: UNIT DOSE: 220 MG
     Route: 048
     Dates: start: 20070301
  2. SYNTHROID [Concomitant]
  3. PRESCRIPTION SLEEP AID [Concomitant]
     Route: 048

REACTIONS (1)
  - INSOMNIA [None]
